FAERS Safety Report 5894614-X (Version None)
Quarter: 2008Q3

REPORT INFORMATION
  Report Type: 
  Country: None (occurrence: None)
  Receive Date: 20080922
  Receipt Date: 20080902
  Transmission Date: 20090109
  Serious: Yes (Death)
  Sender: FDA-Public Use
  Company Number: 91172

PATIENT
  Age: 59 Year
  Sex: Male
  Weight: 90.7194 kg

DRUGS (3)
  1. GLIMEPIRIDEL/ INVAGEN [Suspect]
     Indication: DIABETES MELLITUS
     Dosage: 1 MG/DAILY/ORALLY
     Route: 048
     Dates: end: 20080603
  2. ACTOPLUS MET [Concomitant]
  3. AMARYL [Concomitant]

REACTIONS (5)
  - ASTHENIA [None]
  - FALL [None]
  - HYPOGLYCAEMIA [None]
  - LOSS OF CONSCIOUSNESS [None]
  - UNRESPONSIVE TO STIMULI [None]
